FAERS Safety Report 12520453 (Version 1)
Quarter: 2016Q2

REPORT INFORMATION
  Report Type: Spontaneous
  Country: None (occurrence: None)
  Receive Date: 20160630
  Receipt Date: 20160630
  Transmission Date: 20160815
  Serious: Yes (Disabling, Other)
  Sender: FDA-Public Use
  Company Number: None

PATIENT
  Age: 33 Year
  Sex: Male

DRUGS (1)
  1. ARISTADA [Suspect]
     Active Substance: ARIPIPRAZOLE LAUROXIL

REACTIONS (8)
  - Amnesia [None]
  - Compulsive shopping [None]
  - Eating disorder symptom [None]
  - Economic problem [None]
  - Nausea [None]
  - Vomiting [None]
  - Weight increased [None]
  - Obsessive-compulsive disorder [None]
